FAERS Safety Report 24085549 (Version 1)
Quarter: 2024Q3

REPORT INFORMATION
  Report Type: Spontaneous
  Country: US (occurrence: US)
  Receive Date: 20240712
  Receipt Date: 20240712
  Transmission Date: 20241016
  Serious: No
  Sender: IPSEN
  Company Number: US-IPSEN Group, Research and Development-2024-13709

PATIENT
  Sex: Female
  Weight: 98 kg

DRUGS (2)
  1. SOMATULINE DEPOT [Suspect]
     Active Substance: LANREOTIDE ACETATE
     Indication: Carcinoid tumour of the small bowel
     Dosage: UNDER THE SKIN
     Route: 065
     Dates: start: 2021
  2. CABOMETYX [Concomitant]
     Active Substance: CABOZANTINIB S-MALATE

REACTIONS (2)
  - Diarrhoea [Unknown]
  - Flatulence [Unknown]
